FAERS Safety Report 7919303-9 (Version None)
Quarter: 2011Q4

REPORT INFORMATION
  Report Type: 
  Country: None (occurrence: None)
  Receive Date: 20111115
  Receipt Date: 20111115
  Transmission Date: 20120403
  Serious: Yes (Other)
  Sender: FDA-Public Use
  Company Number: None

PATIENT
  Age: 27 Year
  Sex: Male
  Weight: 74.3899 kg

DRUGS (1)
  1. KEPPRA [Suspect]
     Indication: CONVULSION
     Dosage: 2 TABS PO QAM + 3 TAB QPM
     Route: 048
     Dates: start: 20110201

REACTIONS (4)
  - GASTROINTESTINAL DISORDER [None]
  - MALAISE [None]
  - HEADACHE [None]
  - PRODUCT SUBSTITUTION ISSUE [None]
